FAERS Safety Report 6722338-5 (Version None)
Quarter: 2010Q2

REPORT INFORMATION
  Report Type: 
  Country: None (occurrence: None)
  Receive Date: 20100512
  Receipt Date: 20100505
  Transmission Date: 20101027
  Serious: Yes (Hospitalization)
  Sender: FDA-Public Use
  Company Number: GXKR2010TW05003

PATIENT
  Age: 26 Year
  Sex: Female

DRUGS (6)
  1. LORAZEPAM [Suspect]
     Dosage: 1.5 MG/DAY
     Route: 030
  2. AMISULPRIDE (NGX) [Suspect]
     Indication: SCHIZOPHRENIA
     Dosage: DOSAGES RANGING FROM 200 TO 400 MG/DAY
  3. QUETIAPINE (NGX) [Suspect]
     Dosage: UP TO 200 MG/DAY
  4. ARIPIPRAZOLE [Suspect]
     Dosage: UPT O 10 MG/DAY
  5. CLOZAPINE [Suspect]
     Dosage: UP TO 50 MG/DAY
  6. BIPERIDEN HYDROCHLORIDE (NGX) [Suspect]
     Dosage: 1.5 MG/DAY

REACTIONS (8)
  - ANXIETY [None]
  - DYSPHAGIA [None]
  - DYSPHONIA [None]
  - DYSPNOEA [None]
  - ENDOTRACHEAL INTUBATION [None]
  - MYASTHENIA GRAVIS [None]
  - RESPIRATORY FAILURE [None]
  - TARDIVE DYSKINESIA [None]
